FAERS Safety Report 20736278 (Version 2)
Quarter: 2022Q2

REPORT INFORMATION
  Report Type: Spontaneous
  Country: US (occurrence: US)
  Receive Date: 20220421
  Receipt Date: 20220526
  Transmission Date: 20220720
  Serious: No
  Sender: FDA-Public Use
  Company Number: US-PFIZER INC-202200004413

PATIENT
  Age: 51 Year
  Sex: Female

DRUGS (2)
  1. IBRANCE [Suspect]
     Active Substance: PALBOCICLIB
     Indication: Breast cancer female
     Dosage: 125 MG, CYCLIC
     Dates: start: 20211007
  2. ANASTROZOLE [Concomitant]
     Active Substance: ANASTROZOLE
     Dosage: UNK

REACTIONS (10)
  - Insomnia [Unknown]
  - Fatigue [Unknown]
  - Headache [Recovering/Resolving]
  - Nausea [Recovering/Resolving]
  - Pain [Recovering/Resolving]
  - Diarrhoea [Unknown]
  - Pain in extremity [Unknown]
  - Asthenia [Unknown]
  - Bone pain [Unknown]
  - Fatigue [Unknown]
